FAERS Safety Report 7233197 (Version 13)
Quarter: 2012Q4

REPORT INFORMATION
  Report Type: 
  Country: CA (occurrence: CA)
  Receive Date: 20091229
  Receipt Date: 20121001
  Transmission Date: 20130627
  Serious: Yes (Other)
  Sender: FDA-Public Use
  Company Number: CA-ROCHE-GNE296222

PATIENT
  Age: 56 Year
  Sex: Male
  Weight: 90.39 kg

DRUGS (1)
  1. XOLAIR [Suspect]
     Indication: ASTHMA
     Route: 058
     Dates: start: 20090903

REACTIONS (15)
  - Type 2 diabetes mellitus [Unknown]
  - Sleep apnoea syndrome [Recovering/Resolving]
  - Nasal congestion [Unknown]
  - Ear congestion [Unknown]
  - Nasopharyngitis [Unknown]
  - Rales [Unknown]
  - Cough [Unknown]
  - Gastroenteritis viral [Unknown]
  - Sinus congestion [Unknown]
  - Bronchitis [Unknown]
  - Lower respiratory tract infection [Unknown]
  - Productive cough [Unknown]
  - Dyspnoea [Unknown]
  - Influenza [Recovered/Resolved]
  - Wheezing [Unknown]
